FAERS Safety Report 7788401-5 (Version None)
Quarter: 2011Q3

REPORT INFORMATION
  Report Type: 
  Country: None (occurrence: None)
  Receive Date: 20110930
  Receipt Date: 20110919
  Transmission Date: 20111222
  Serious: Yes (Hospitalization)
  Sender: FDA-Public Use
  Company Number: US-JNJFOC-20110908124

PATIENT
  Sex: Female
  Weight: 72.58 kg

DRUGS (4)
  1. LITHIUM [Suspect]
     Indication: DEPRESSION
     Route: 048
  2. INVEGA SUSTENNA [Suspect]
     Indication: ANXIETY
     Route: 030
     Dates: start: 20110701, end: 20110701
  3. INVEGA SUSTENNA [Suspect]
     Indication: DEPRESSION
     Route: 030
     Dates: start: 20110701, end: 20110701
  4. INVEGA SUSTENNA [Suspect]
     Indication: BIPOLAR DISORDER
     Route: 030
     Dates: start: 20110701, end: 20110701

REACTIONS (11)
  - GRAND MAL CONVULSION [None]
  - FALL [None]
  - GENERAL PHYSICAL HEALTH DETERIORATION [None]
  - CONFUSIONAL STATE [None]
  - STARING [None]
  - TREMOR [None]
  - HEMIPLEGIA [None]
  - HALLUCINATION [None]
  - AMNESIA [None]
  - IMPAIRED SELF-CARE [None]
  - TRANSIENT ISCHAEMIC ATTACK [None]
